FAERS Safety Report 24540290 (Version 1)
Quarter: 2024Q4

REPORT INFORMATION
  Report Type: Spontaneous
  Country: US (occurrence: None)
  Receive Date: 20241023
  Receipt Date: 20241023
  Transmission Date: 20250115
  Serious: Yes (Disabling)
  Sender: Public
  Company Number: None

PATIENT
  Age: 74 Year
  Sex: Female
  Weight: 254.01 kg

DRUGS (9)
  1. CLOTRIMAZOLE AND BETAMETHASONE DIPROPIONATE [Suspect]
     Active Substance: BETAMETHASONE\BETAMETHASONE DIPROPIONATE\CLOTRIMAZOLE
     Dosage: APPLY FOR YEAST INFECTION
  2. VENLAFAXINE [Suspect]
     Active Substance: VENLAFAXINE HYDROCHLORIDE
  3. LOSARTAN [Suspect]
     Active Substance: LOSARTAN
  4. AMLODIPINE [Suspect]
     Active Substance: AMLODIPINE BESYLATE
  5. FUROSEMIDE [Suspect]
     Active Substance: FUROSEMIDE
  6. LEVOTHYROXINE [Suspect]
     Active Substance: LEVOTHYROXINE
  7. METOPROLOL TARTRATE [Suspect]
     Active Substance: METOPROLOL TARTRATE
  8. DICLOFENAC SODIUM 1% GEL [Suspect]
     Active Substance: DICLOFENAC SODIUM
  9. ZOLPIDEM [Suspect]
     Active Substance: ZOLPIDEM TARTRATE

REACTIONS (9)
  - Oropharyngeal pain [None]
  - Nausea [None]
  - Headache [None]
  - Stomatitis [None]
  - Skin discolouration [None]
  - Oral discomfort [None]
  - Skin exfoliation [None]
  - Pustule [None]
  - Abscess [None]

NARRATIVE: CASE EVENT DATE: 20240728
